FAERS Safety Report 23099840 (Version 1)
Quarter: 2023Q4

REPORT INFORMATION
  Report Type: Spontaneous
  Country: US (occurrence: None)
  Receive Date: 20231020
  Receipt Date: 20231020
  Transmission Date: 20240109
  Serious: No
  Sender: FDA-Public Use
  Company Number: None

PATIENT
  Sex: Male

DRUGS (1)
  1. EPCLUSA [Suspect]
     Active Substance: SOFOSBUVIR\VELPATASVIR
     Indication: Chronic hepatitis C
     Dosage: OTHER QUANTITY : 400/100 MG;?FREQUENCY : DAILY;?
     Route: 048
     Dates: start: 202310

REACTIONS (6)
  - Nausea [None]
  - Headache [None]
  - Fatigue [None]
  - Arthralgia [None]
  - Arthralgia [None]
  - Decreased activity [None]
